FAERS Safety Report 6786019-4 (Version None)
Quarter: 2010Q2

REPORT INFORMATION
  Report Type: 
  Country: None (occurrence: None)
  Receive Date: 20100621
  Receipt Date: 20100621
  Transmission Date: 20101027
  Serious: Yes (Hospitalization)
  Sender: FDA-Public Use
  Company Number: None

PATIENT
  Sex: Male
  Weight: 105.5 kg

DRUGS (5)
  1. CYTARABINE [Suspect]
     Dosage: 70 MG
  2. DOXORUBICIN HYDROCHLORIDE [Suspect]
     Dosage: 220 MG
  3. METHOTREXATE [Suspect]
     Dosage: 15 MG
  4. PEG-L-ASPARAGINASE (K-H) [Suspect]
     Dosage: 5500 MG
  5. VINCRISTINE SULFATE [Suspect]
     Dosage: 8 MG

REACTIONS (5)
  - ASTHENIA [None]
  - BRAIN ABSCESS [None]
  - CONFUSIONAL STATE [None]
  - HEADACHE [None]
  - SCEDOSPORIUM INFECTION [None]
